FAERS Safety Report 4326900-9 (Version None)
Quarter: 2004Q1

REPORT INFORMATION
  Report Type: 
  Country: None (occurrence: None)
  Receive Date: 20040330
  Receipt Date: 20030611
  Transmission Date: 20041129
  Serious: Yes (Hospitalization, Disabling, Other)
  Sender: FDA-Public Use
  Company Number: US-MERCK-0306USA01432

PATIENT
  Age: 51 Year
  Sex: Female
  Weight: 83 kg

DRUGS (9)
  1. LORCET 10/650 [Concomitant]
     Route: 065
  2. ALBUTEROL [Concomitant]
     Route: 055
  3. PREMPRO [Concomitant]
     Route: 065
  4. TRICOR [Concomitant]
     Route: 048
  5. IBUPROFEN [Concomitant]
     Indication: ARTHRITIS
     Route: 065
  6. DILANTIN [Concomitant]
     Route: 048
     Dates: start: 19720101
  7. VIOXX [Suspect]
     Indication: OSTEOARTHRITIS
     Route: 048
     Dates: end: 20020630
  8. VIOXX [Suspect]
     Route: 048
     Dates: start: 20020701
  9. DETROL [Concomitant]
     Route: 065

REACTIONS (37)
  - ACUTE MYOCARDIAL INFARCTION [None]
  - ANGINA PECTORIS [None]
  - ANGINA UNSTABLE [None]
  - ANHEDONIA [None]
  - BLOOD DISORDER [None]
  - CARDIAC VALVE DISEASE [None]
  - CONVULSION [None]
  - CORONARY ARTERY DISEASE [None]
  - CORONARY ARTERY OCCLUSION [None]
  - CRYING [None]
  - DEPRESSED MOOD [None]
  - DIZZINESS [None]
  - DYSPEPSIA [None]
  - EJECTION FRACTION DECREASED [None]
  - FEELING ABNORMAL [None]
  - GASTROOESOPHAGEAL REFLUX DISEASE [None]
  - HAEMORRHAGE [None]
  - HALLUCINATION, AUDITORY [None]
  - HYPERHIDROSIS [None]
  - HYPERTENSION [None]
  - INJURY [None]
  - INTERMITTENT CLAUDICATION [None]
  - MAJOR DEPRESSION [None]
  - MYOCARDIAL INFARCTION [None]
  - NAUSEA [None]
  - NIGHT SWEATS [None]
  - OEDEMA PERIPHERAL [None]
  - OSTEOARTHRITIS [None]
  - PAIN IN EXTREMITY [None]
  - PALPITATIONS [None]
  - RESTLESSNESS [None]
  - SELF ESTEEM DECREASED [None]
  - SLEEP DISORDER [None]
  - SUICIDAL IDEATION [None]
  - SYNCOPE [None]
  - VASODILATATION [None]
  - VOMITING [None]
